FAERS Safety Report 9462055 (Version 1)
Quarter: 2013Q3

REPORT INFORMATION
  Report Type: Spontaneous
  Country: ES (occurrence: ES)
  Receive Date: 20130816
  Receipt Date: 20130816
  Transmission Date: 20140515
  Serious: Yes (Other)
  Sender: FDA-Public Use
  Company Number: ES-MYLANLABS-2013S1017383

PATIENT
  Age: 51 Year
  Sex: Female

DRUGS (5)
  1. DEFLAZACORT [Suspect]
     Route: 065
  2. FUROSEMIDE [Suspect]
     Route: 065
  3. SIMVASTATIN [Concomitant]
     Route: 065
  4. FLUOXETINE [Concomitant]
     Route: 065
  5. OMEPRAZOLE [Concomitant]
     Route: 065

REACTIONS (1)
  - Gouty tophus [Recovering/Resolving]
